FAERS Safety Report 15169172 (Version 1)
Quarter: 2018Q3

REPORT INFORMATION
  Report Type: Spontaneous
  Country: FR (occurrence: FR)
  Receive Date: 20180720
  Receipt Date: 20180720
  Transmission Date: 20181010
  Serious: Yes (Hospitalization)
  Sender: FDA-Public Use
  Company Number: FR-TEVA-2018-FR-929094

PATIENT
  Age: 76 Year
  Sex: Female
  Weight: 48 kg

DRUGS (3)
  1. ATENOLOL. [Suspect]
     Active Substance: ATENOLOL
     Indication: HYPERTENSION
     Dosage: 50 MILLIGRAM DAILY;
     Route: 048
  2. IRBESARTAN. [Suspect]
     Active Substance: IRBESARTAN
     Indication: HYPERTENSION
     Dosage: 75 MILLIGRAM DAILY;
     Route: 048
     Dates: end: 20180513
  3. TERCIAN 40 MG/ML, SOLUTION BUVABLE EN GOUTTES [Suspect]
     Active Substance: CYAMEMAZINE
     Indication: DEPRESSION
     Dosage: 10 GTT DAILY;
     Route: 048
     Dates: end: 20180511

REACTIONS (2)
  - Hypotension [Recovered/Resolved]
  - Malaise [Recovered/Resolved]

NARRATIVE: CASE EVENT DATE: 20180510
